FAERS Safety Report 21416046 (Version 2)
Quarter: 2022Q4

REPORT INFORMATION
  Report Type: Report from Study
  Country: GB (occurrence: GB)
  Receive Date: 20221006
  Receipt Date: 20221018
  Transmission Date: 20230113
  Serious: Yes (Hospitalization)
  Sender: FDA-Public Use
  Company Number: GB-NOVARTISPH-NVSC2022GB175811

PATIENT
  Sex: Female

DRUGS (4)
  1. KISQALI [Suspect]
     Active Substance: RIBOCICLIB
     Indication: Product used for unknown indication
     Dosage: UNK
     Route: 065
  2. KISQALI [Suspect]
     Active Substance: RIBOCICLIB
     Dosage: UNK
     Route: 065
     Dates: start: 202206
  3. KISQALI [Suspect]
     Active Substance: RIBOCICLIB
     Dosage: UNK
     Route: 065
  4. FULVESTRANT [Concomitant]
     Active Substance: FULVESTRANT
     Indication: Product used for unknown indication
     Dosage: UNK
     Route: 065
     Dates: start: 202206

REACTIONS (4)
  - Neutrophil count decreased [Unknown]
  - Infection [Unknown]
  - Musculoskeletal pain [Unknown]
  - Sciatic nerve neuropathy [Unknown]
